FAERS Safety Report 6485908-8 (Version None)
Quarter: 2009Q4

REPORT INFORMATION
  Report Type: 
  Country: None (occurrence: None)
  Receive Date: 20091204
  Receipt Date: 20091123
  Transmission Date: 20100525
  Serious: Yes (Disabling)
  Sender: FDA-Public Use
  Company Number: 441172

PATIENT
  Sex: Female

DRUGS (2)
  1. BUPIVACAINE HCL [Suspect]
     Indication: ANALGESIC THERAPY
     Dosage: INTRA-ARTICULAR
     Route: 014
     Dates: start: 20071101
  2. BUPIVACAINE HCL [Suspect]
     Indication: ANALGESIC THERAPY
     Dosage: INTRA-ARTICULAR
     Route: 014
     Dates: start: 20071101

REACTIONS (3)
  - CHONDROLYSIS [None]
  - JOINT RANGE OF MOTION DECREASED [None]
  - PAIN [None]
